FAERS Safety Report 6017648-3 (Version None)
Quarter: 2008Q4

REPORT INFORMATION
  Report Type: 
  Country: None (occurrence: None)
  Receive Date: 20081223
  Receipt Date: 20081219
  Transmission Date: 20090506
  Serious: Yes (Other)
  Sender: FDA-Public Use
  Company Number: TR-WYE-H07374308

PATIENT
  Sex: Male
  Weight: 70 kg

DRUGS (2)
  1. TAZOCIN [Suspect]
     Indication: OSTEOMYELITIS
     Route: 042
     Dates: start: 20081214, end: 20081216
  2. CIPRO [Concomitant]
     Indication: OSTEOMYELITIS
     Route: 048
     Dates: start: 20081214

REACTIONS (3)
  - CHEST PAIN [None]
  - PANCYTOPENIA [None]
  - PARAESTHESIA [None]
